FAERS Safety Report 6888882-5 (Version None)
Quarter: 2010Q3

REPORT INFORMATION
  Report Type: 
  Country: None (occurrence: None)
  Receive Date: 20100730
  Receipt Date: 20071120
  Transmission Date: 20110219
  Serious: No
  Sender: FDA-Public Use
  Company Number: US-PFIZER INC-2007098093

PATIENT
  Sex: Female
  Weight: 86.363 kg

DRUGS (4)
  1. LIPITOR [Suspect]
     Indication: BLOOD CHOLESTEROL ABNORMAL
     Dates: start: 20070901
  2. PLAVIX [Concomitant]
  3. DILTIAZEM [Concomitant]
  4. PROPRANOLOL [Concomitant]

REACTIONS (1)
  - HAEMORRHAGE [None]
